FAERS Safety Report 6233752-9 (Version None)
Quarter: 2009Q2

REPORT INFORMATION
  Report Type: 
  Country: None (occurrence: None)
  Receive Date: 20090616
  Receipt Date: 20090616
  Transmission Date: 20091009
  Serious: Yes (Other)
  Sender: FDA-Public Use
  Company Number: None

PATIENT
  Age: 40 Year
  Sex: Female

DRUGS (1)
  1. BOTOX [Suspect]
     Indication: HEADACHE

REACTIONS (7)
  - DISCOMFORT [None]
  - DISTURBANCE IN ATTENTION [None]
  - DYSKINESIA [None]
  - INFLUENZA LIKE ILLNESS [None]
  - INSOMNIA [None]
  - PAIN [None]
  - TEMPERATURE REGULATION DISORDER [None]
